FAERS Safety Report 8443790-3 (Version None)
Quarter: 2012Q2

REPORT INFORMATION
  Report Type: 
  Country: None (occurrence: None)
  Receive Date: 20120618
  Receipt Date: 20120604
  Transmission Date: 20120825
  Serious: Yes (Other)
  Sender: FDA-Public Use
  Company Number: IT-US-EMD SERONO, INC.-7137550

PATIENT
  Age: 35 Year
  Sex: Male

DRUGS (2)
  1. INTERFERON BETA NOS [Suspect]
     Route: 058
  2. INTERFERON BETA NOS [Suspect]
     Indication: MULTIPLE SCLEROSIS
     Route: 058

REACTIONS (1)
  - SARCOIDOSIS [None]
